FAERS Safety Report 8795962 (Version 3)
Quarter: 2012Q4

REPORT INFORMATION
  Report Type: 
  Country: JP (occurrence: JP)
  Receive Date: 20120919
  Receipt Date: 20121001
  Transmission Date: 20130627
  Serious: Yes (Other)
  Sender: FDA-Public Use
  Company Number: JP-JNJFOC-20120904167

PATIENT
  Age: 35 Year
  Sex: Female

DRUGS (33)
  1. DUROTEP MT [Suspect]
     Indication: CANCER PAIN
     Route: 062
     Dates: start: 20090831, end: 20090903
  2. DUROTEP MT [Suspect]
     Indication: CANCER PAIN
     Route: 062
     Dates: start: 20090829, end: 20090830
  3. DUROTEP MT [Suspect]
     Indication: CANCER PAIN
     Route: 062
     Dates: start: 20090713, end: 20090824
  4. MORPHINE HYDROCHLORIDE [Suspect]
     Indication: CANCER PAIN
     Dosage: oral morphine equivalent dose, 300 mg per day
     Route: 065
     Dates: start: 20090514, end: 20090705
  5. MORPHINE HYDROCHLORIDE [Suspect]
     Indication: CANCER PAIN
     Route: 065
     Dates: start: 20090706, end: 20090824
  6. MORPHINE HYDROCHLORIDE [Suspect]
     Indication: CANCER PAIN
     Dosage: oral morphine equivalent dose, 300 mg per day
     Route: 065
     Dates: start: 20090829, end: 20090830
  7. MORPHINE HYDROCHLORIDE [Suspect]
     Indication: CANCER PAIN
     Dosage: oral morphine equivalent dose, 300 mg per day
     Route: 065
     Dates: start: 20090904, end: 20090909
  8. MORPHINE HYDROCHLORIDE [Suspect]
     Indication: CANCER PAIN
     Dosage: oral morphine equivalent dose, 300 mg per day
     Route: 065
     Dates: start: 20090831, end: 20090902
  9. HYDROXYZINE HYDROCHLORIDE [Suspect]
     Indication: CANCER PAIN
     Route: 042
     Dates: start: 20090727, end: 20090727
  10. HYDROXYZINE HYDROCHLORIDE [Suspect]
     Indication: CANCER PAIN
     Route: 042
     Dates: start: 20090525, end: 20090721
  11. HYDROXYZINE HYDROCHLORIDE [Suspect]
     Indication: CANCER PAIN
     Route: 042
     Dates: start: 20090722, end: 20090726
  12. KETAMINE HYDROCHLORIDE [Suspect]
     Indication: CANCER PAIN
     Route: 065
     Dates: start: 20090623, end: 20090803
  13. KETAMINE HYDROCHLORIDE [Suspect]
     Indication: CANCER PAIN
     Route: 065
     Dates: start: 20090805, end: 20090805
  14. KETAMINE HYDROCHLORIDE [Suspect]
     Indication: CANCER PAIN
     Route: 065
     Dates: start: 20090804, end: 20090804
  15. CLOMIPRAMINE HYDROCHLORIDE [Suspect]
     Indication: CANCER PAIN
     Route: 042
     Dates: start: 20090518, end: 20090722
  16. CLOMIPRAMINE HYDROCHLORIDE [Suspect]
     Indication: CANCER PAIN
     Route: 042
     Dates: start: 20090724, end: 20090804
  17. CLOMIPRAMINE HYDROCHLORIDE [Suspect]
     Indication: CANCER PAIN
     Route: 042
     Dates: start: 20090805, end: 20090806
  18. CLOMIPRAMINE HYDROCHLORIDE [Suspect]
     Indication: CANCER PAIN
     Route: 042
     Dates: start: 20090723, end: 20090723
  19. BETAMETHASONE SODIUM PHOSPHATE [Suspect]
     Indication: CANCER PAIN
     Route: 042
     Dates: start: 20090704, end: 20090706
  20. BETAMETHASONE SODIUM PHOSPHATE [Suspect]
     Indication: CANCER PAIN
     Route: 042
     Dates: start: 20090707, end: 20090807
  21. BETAMETHASONE SODIUM PHOSPHATE [Suspect]
     Indication: CANCER PAIN
     Route: 042
     Dates: start: 20090808, end: 20090810
  22. BETAMETHASONE SODIUM PHOSPHATE [Suspect]
     Indication: CANCER PAIN
     Route: 042
     Dates: start: 20090811, end: 20090824
  23. BETAMETHASONE SODIUM PHOSPHATE [Suspect]
     Indication: CANCER PAIN
     Route: 042
     Dates: start: 20090703, end: 20090703
  24. BETAMETHASONE SODIUM PHOSPHATE [Suspect]
     Indication: CANCER PAIN
     Route: 042
     Dates: start: 20090512
  25. BETAMETHASONE SODIUM PHOSPHATE [Suspect]
     Indication: CANCER PAIN
     Route: 042
     Dates: start: 20090622, end: 20090622
  26. FLURBIPROFEN AXETIL [Concomitant]
     Indication: CANCER PAIN
     Route: 042
     Dates: start: 20090808, end: 20090811
  27. FLURBIPROFEN AXETIL [Concomitant]
     Indication: CANCER PAIN
     Route: 042
     Dates: end: 20090807
  28. FLURBIPROFEN AXETIL [Concomitant]
     Indication: CANCER PAIN
     Route: 042
     Dates: start: 20090813, end: 20090813
  29. FLURBIPROFEN AXETIL [Concomitant]
     Indication: CANCER PAIN
     Route: 042
     Dates: start: 20090812, end: 20090812
  30. FLURBIPROFEN AXETIL [Concomitant]
     Indication: CANCER PAIN
     Route: 042
     Dates: start: 20090904
  31. LOXOPROFEN [Concomitant]
     Indication: PRODUCT USED FOR UNKNOWN INDICATION
     Route: 048
     Dates: start: 20090814, end: 20090824
  32. RISPERIDONE [Concomitant]
     Indication: DELIRIUM
     Dosage: as needed
     Route: 048
     Dates: start: 20090724, end: 20090724
  33. RISPERIDONE [Concomitant]
     Indication: DELIRIUM
     Route: 048
     Dates: start: 20090727, end: 20090824

REACTIONS (3)
  - Delirium [Recovered/Resolved]
  - Inadequate analgesia [Recovered/Resolved]
  - Somnolence [Unknown]
